FAERS Safety Report 24406857 (Version 1)
Quarter: 2024Q4

REPORT INFORMATION
  Report Type: Spontaneous
  Country: US (occurrence: US)
  Receive Date: 20241007
  Receipt Date: 20241007
  Transmission Date: 20250115
  Serious: Yes (Other)
  Sender: AMGEN
  Company Number: US-AMGEN-USASP2024195683

PATIENT
  Age: 34 Year
  Sex: Male

DRUGS (2)
  1. PREDNISONE [Suspect]
     Active Substance: PREDNISONE
     Indication: Immunosuppression
     Dosage: UNK
     Route: 065
  2. PREDNISONE [Suspect]
     Active Substance: PREDNISONE
     Dosage: INCREASED DOSE
     Route: 065

REACTIONS (6)
  - Pulmonary mucormycosis [Unknown]
  - Pneumonia [Unknown]
  - Coronavirus test positive [Unknown]
  - Human rhinovirus test positive [Unknown]
  - Enterovirus test positive [Unknown]
  - Influenza B virus test positive [Unknown]
